FAERS Safety Report 15348333 (Version 1)
Quarter: 2018Q3

REPORT INFORMATION
  Report Type: Report from Study
  Country: None (occurrence: AU)
  Receive Date: 20180904
  Receipt Date: 20180904
  Transmission Date: 20181010
  Serious: Yes (Other)
  Sender: FDA-Public Use
  Company Number: AU-ABBVIE-18S-008-2473740-00

PATIENT
  Age: 81 Year
  Sex: Male

DRUGS (1)
  1. DUODOPA [Suspect]
     Active Substance: CARBIDOPA\LEVODOPA
     Indication: PARKINSON^S DISEASE
     Dosage: 16?HOURLY INFUSION
     Route: 050
     Dates: start: 20170706

REACTIONS (1)
  - B-cell lymphoma stage IV [Not Recovered/Not Resolved]

NARRATIVE: CASE EVENT DATE: 201808
